FAERS Safety Report 20697867 (Version 2)
Quarter: 2022Q2

REPORT INFORMATION
  Report Type: Report from Study
  Country: PH (occurrence: PH)
  Receive Date: 20220412
  Receipt Date: 20220412
  Transmission Date: 20220721
  Serious: Yes (Hospitalization)
  Sender: FDA-Public Use
  Company Number: PH-JNJFOC-20220416412

PATIENT
  Age: 72 Year
  Sex: Female

DRUGS (13)
  1. INVEGA SUSTENNA [Suspect]
     Active Substance: PALIPERIDONE PALMITATE
     Indication: Schizophrenia
     Dosage: LAST ADMINISTRATION WAS GIVEN TO HER LAST MARCH 11,2022.
     Route: 030
  2. INVEGA SUSTENNA [Suspect]
     Active Substance: PALIPERIDONE PALMITATE
  3. INVEGA SUSTENNA [Suspect]
     Active Substance: PALIPERIDONE PALMITATE
  4. AKIDIN [Concomitant]
     Indication: Tremor
     Route: 048
  5. REBAMIPIDE [Concomitant]
     Active Substance: REBAMIPIDE
     Indication: Ulcer
     Route: 048
  6. FLUIMUCIL [Concomitant]
     Active Substance: ACETYLCYSTEINE
     Indication: Productive cough
     Route: 048
  7. SODIUM BICARBONATE [Concomitant]
     Active Substance: SODIUM BICARBONATE
     Indication: Antacid therapy
     Route: 048
  8. IRON [Concomitant]
     Active Substance: IRON
     Dosage: MULTIVITAMINS
     Route: 048
  9. IVABRADINE [Concomitant]
     Active Substance: IVABRADINE
     Indication: Angina pectoris
     Route: 048
  10. SILYMARINE [Concomitant]
     Dosage: AS LIVER ENZYME
     Route: 048
  11. TRIMETAZIDINE [Concomitant]
     Active Substance: TRIMETAZIDINE
     Indication: Cardiac disorder
     Route: 048
  12. MELATONIN [Concomitant]
     Active Substance: MELATONIN
     Indication: Sleep disorder
     Route: 048
  13. ERYTHROPOIETIN [Concomitant]
     Active Substance: ERYTHROPOIETIN
     Indication: Dialysis

REACTIONS (1)
  - Pneumonia [Not Recovered/Not Resolved]

NARRATIVE: CASE EVENT DATE: 20220403
